FAERS Safety Report 20136922 (Version 1)
Quarter: 2021Q4

REPORT INFORMATION
  Report Type: Spontaneous
  Country: US (occurrence: None)
  Receive Date: 20211201
  Receipt Date: 20211201
  Transmission Date: 20220303
  Serious: Yes (Disabling)
  Sender: FDA-Public Use
  Company Number: None

PATIENT
  Age: 68 Year
  Sex: Female

DRUGS (1)
  1. BLISTEX ODOR-EATERS POWDER [Suspect]
     Active Substance: TOLNAFTATE
     Indication: Skin odour abnormal

REACTIONS (3)
  - Product contamination [None]
  - Thrombocytopenia [None]
  - Skin cancer [None]
